FAERS Safety Report 10413630 (Version 1)
Quarter: 2014Q2

REPORT INFORMATION
  Report Type: Spontaneous
  Country: US (occurrence: None)
  Receive Date: 20140604
  Receipt Date: 20140604
  Transmission Date: 20141212
  Serious: Yes (Hospitalization)
  Sender: FDA-Public Use
  Company Number: 20120905CINRY3337

PATIENT
  Age: 55 Year
  Sex: Female

DRUGS (12)
  1. CINRYZE [Suspect]
     Indication: PROPHYLAXIS
     Dosage: 1000 UNIT,3 IN 1WK, INTRAVENOUS
     Route: 042
     Dates: start: 2009
  2. CINRYZE [Suspect]
     Dosage: 1000 UNIT,3 IN 1WK, INTRAVENOUS
     Route: 042
     Dates: start: 2009
  3. KALBITOR (ECALLANTIDE) [Suspect]
     Indication: PROPHYLAXIS
  4. KALBITOR (ECALLANTIDE) [Suspect]
     Indication: HEREDITARY ANGIOEDEMA
  5. GLUCOPHAGE (METFORMIN HYDROCHLORIDE) [Concomitant]
  6. EFFEXOR (VENLAFAXINE) [Concomitant]
  7. LEVOTHROID (LEVOTHYROXINE SODIUM) [Concomitant]
  8. WELLBUTRIN (BUPROPION HYDROCHLORIDE) [Concomitant]
  9. MORPHINE (MORPHINE) [Concomitant]
  10. PEPCID (FAMOTIDINE) [Concomitant]
  11. REGLAN (METOCLOPRAMIDE) [Concomitant]
  12. LIPITOR (ATORVASTATIN CALCIUM) [Concomitant]

REACTIONS (3)
  - Hereditary angioedema [None]
  - Inappropriate schedule of drug administration [None]
  - Drug ineffective [None]
